FAERS Safety Report 9972796 (Version 1)
Quarter: 2014Q1

REPORT INFORMATION
  Report Type: Spontaneous
  Country: US (occurrence: US)
  Receive Date: 20140306
  Receipt Date: 20140306
  Transmission Date: 20141002
  Serious: No
  Sender: FDA-Public Use
  Company Number: US-PFIZER INC-2014060131

PATIENT
  Age: 55 Year
  Sex: Female
  Weight: 60.32 kg

DRUGS (2)
  1. ESTRING [Suspect]
     Indication: VULVOVAGINAL DRYNESS
     Dosage: UNK, EVERY 3 MONTHS
     Route: 067
     Dates: start: 201106
  2. ESTRING [Suspect]
     Indication: DYSPAREUNIA

REACTIONS (2)
  - Vulvovaginal pruritus [Unknown]
  - Fungal infection [Unknown]
